FAERS Safety Report 21694855 (Version 2)
Quarter: 2022Q4

REPORT INFORMATION
  Report Type: Report from Study
  Country: FR (occurrence: FR)
  Receive Date: 20221207
  Receipt Date: 20221217
  Transmission Date: 20230113
  Serious: Yes (Death)
  Sender: FDA-Public Use
  Company Number: FR-TAKEDA-2022TUS094227

PATIENT
  Age: 79 Year

DRUGS (1)
  1. MOBOCERTINIB [Suspect]
     Active Substance: MOBOCERTINIB
     Indication: Product used for unknown indication
     Dosage: UNK
     Route: 065

REACTIONS (3)
  - Malnutrition [Fatal]
  - Depression [Fatal]
  - Decreased appetite [Fatal]
